FAERS Safety Report 7396556-X (Version None)
Quarter: 2011Q1

REPORT INFORMATION
  Report Type: 
  Country: None (occurrence: None)
  Receive Date: 20110328
  Receipt Date: 20110314
  Transmission Date: 20110831
  Serious: Yes (Hospitalization)
  Sender: FDA-Public Use
  Company Number: 1000019381

PATIENT
  Age: 22 Year
  Sex: Male

DRUGS (6)
  1. RIVOTRIL (CLONAZEPAM) [Concomitant]
     Dosage: (14  MG,ONCE), ORAL
     Route: 048
     Dates: start: 20110120, end: 20110120
  2. TRIMEPRAZINE TARTRATE [Suspect]
     Dosage: (ONCE),ORAL
     Route: 048
     Dates: start: 20110120, end: 20110120
  3. DAFALGAN (PARACETAMOL) (FARACETAMOL) [Concomitant]
  4. ESCITALOPRAM OXALATE [Suspect]
     Dosage: (200 MG,ONCE), ORAL
     Route: 048
     Dates: start: 20110120, end: 20110120
  5. ZYPREXA [Suspect]
     Dosage: (110 MG,ONCE), ORAL
     Route: 048
     Dates: start: 20110120, end: 20110120
  6. DEPAMIDE (VALPROMIDE) [Suspect]
     Dosage: (6 GM, ONCE),ORAL
     Route: 048
     Dates: start: 20110120, end: 20110120

REACTIONS (4)
  - POISONING DELIBERATE [None]
  - SOMNOLENCE [None]
  - TOXICITY TO VARIOUS AGENTS [None]
  - SUICIDE ATTEMPT [None]
